FAERS Safety Report 10510046 (Version 1)
Quarter: 2014Q4

REPORT INFORMATION
  Report Type: Spontaneous
  Country: GB (occurrence: GB)
  Receive Date: 20141010
  Receipt Date: 20141010
  Transmission Date: 20150528
  Serious: Yes (Life-Threatening)
  Sender: FDA-Public Use
  Company Number: GB-TEVA-513140ISR

PATIENT
  Age: 18 Year
  Sex: Female

DRUGS (2)
  1. METRONIDAZOLE. [Suspect]
     Active Substance: METRONIDAZOLE
     Dosage: 800 MILLIGRAM DAILY; 200MG/5ML ORAL SUSPENSION
     Route: 048
  2. DOXYCYCLINE. [Concomitant]
     Active Substance: DOXYCYCLINE
     Route: 048

REACTIONS (5)
  - Erythema multiforme [Unknown]
  - Visual impairment [Unknown]
  - Mouth swelling [Unknown]
  - Abdominal pain [Unknown]
  - Paraesthesia oral [Unknown]

NARRATIVE: CASE EVENT DATE: 20140923
